FAERS Safety Report 14536203 (Version 1)
Quarter: 2018Q1

REPORT INFORMATION
  Report Type: Spontaneous
  Country: US (occurrence: US)
  Receive Date: 20180214
  Receipt Date: 20180214
  Transmission Date: 20180509
  Serious: Yes (Hospitalization)
  Sender: FDA-Public Use
  Company Number: None

PATIENT
  Age: 57 Year
  Sex: Female
  Weight: 49 kg

DRUGS (4)
  1. PALLIATIVE RADIOTHERAPY [Concomitant]
  2. ZOMETA [Concomitant]
     Active Substance: ZOLEDRONIC ACID
  3. NIVOLUMAB 10MG/ML, 40 AND 100ML VIALS USE D [Suspect]
     Active Substance: NIVOLUMAB
     Indication: THYROID CANCER
     Route: 042
     Dates: start: 20171229, end: 20180125
  4. IPILIMUMAB [Suspect]
     Active Substance: IPILIMUMAB
     Dosage: 1 MG/KG Q6W INTRAVENOUS
     Route: 042
     Dates: start: 20180111

REACTIONS (1)
  - Cholecystitis [None]

NARRATIVE: CASE EVENT DATE: 20180213
